FAERS Safety Report 19287373 (Version 1)
Quarter: 2021Q2

REPORT INFORMATION
  Report Type: Spontaneous
  Country: US (occurrence: US)
  Receive Date: 20210521
  Receipt Date: 20210521
  Transmission Date: 20210717
  Serious: No
  Sender: FDA-Public Use
  Company Number: US-RADIUS HEALTH INC.-2021US001258

PATIENT
  Sex: Female

DRUGS (4)
  1. STELARA [Concomitant]
     Active Substance: USTEKINUMAB
     Indication: PRODUCT USED FOR UNKNOWN INDICATION
  2. TYMLOS [Suspect]
     Active Substance: ABALOPARATIDE
     Indication: OSTEOPOROSIS
     Dosage: 80 MICROGRAM, QD
     Route: 058
     Dates: start: 202008
  3. TYMLOS [Suspect]
     Active Substance: ABALOPARATIDE
     Indication: CROHN^S DISEASE
  4. TYMLOS [Suspect]
     Active Substance: ABALOPARATIDE
     Indication: CROHN^S DISEASE

REACTIONS (2)
  - Pain [Unknown]
  - Condition aggravated [Unknown]
